FAERS Safety Report 9406315 (Version 1)
Quarter: 2013Q3

REPORT INFORMATION
  Report Type: Spontaneous
  Country: US (occurrence: US)
  Receive Date: 20130717
  Receipt Date: 20130717
  Transmission Date: 20140515
  Serious: No
  Sender: FDA-Public Use
  Company Number: US-009507513-1304USA000543

PATIENT
  Age: 32 Year
  Sex: Female

DRUGS (3)
  1. GARDASIL [Suspect]
     Indication: PROPHYLAXIS
     Dosage: .5 ML
     Route: 030
     Dates: start: 20130328, end: 20130328
  2. SINGULAIR [Suspect]
     Route: 048
  3. SYNTHYROID [Concomitant]
     Dosage: 125 MG, QD
     Route: 048

REACTIONS (2)
  - Episiotomy [Unknown]
  - Maternal exposure during pregnancy [Recovered/Resolved]
